FAERS Safety Report 25061359 (Version 1)
Quarter: 2025Q1

REPORT INFORMATION
  Report Type: Spontaneous
  Country: US (occurrence: US)
  Receive Date: 20250311
  Receipt Date: 20250311
  Transmission Date: 20250409
  Serious: No
  Sender: Teyro Labs
  Company Number: US-TEYRO-2024-TY-000426

PATIENT

DRUGS (8)
  1. CARBOPLATIN [Suspect]
     Active Substance: CARBOPLATIN
     Indication: Hodgkin^s disease
     Route: 065
  2. CARBOPLATIN [Suspect]
     Active Substance: CARBOPLATIN
     Indication: Hodgkin^s disease
  3. NIVOLUMAB [Concomitant]
     Active Substance: NIVOLUMAB
     Route: 065
  4. NIVOLUMAB [Concomitant]
     Active Substance: NIVOLUMAB
  5. IFOSFAMIDE [Concomitant]
     Active Substance: IFOSFAMIDE
     Route: 065
  6. IFOSFAMIDE [Concomitant]
     Active Substance: IFOSFAMIDE
  7. ETOPOSIDE [Concomitant]
     Active Substance: ETOPOSIDE
     Route: 065
  8. ETOPOSIDE [Concomitant]
     Active Substance: ETOPOSIDE

REACTIONS (1)
  - Off label use [Unknown]
